FAERS Safety Report 13448089 (Version 1)
Quarter: 2017Q2

REPORT INFORMATION
  Report Type: Report from Study
  Country: US (occurrence: US)
  Receive Date: 20170417
  Receipt Date: 20170417
  Transmission Date: 20170830
  Serious: Yes (Other)
  Sender: FDA-Public Use
  Company Number: US-AMGEN-USASL2017057623

PATIENT
  Age: 77 Year
  Sex: Female

DRUGS (1)
  1. REPATHA [Suspect]
     Active Substance: EVOLOCUMAB
     Indication: HYPERLIPIDAEMIA
     Dosage: 140 MG, Q2WK
     Route: 065

REACTIONS (8)
  - Memory impairment [Unknown]
  - Injection site pain [Unknown]
  - Stress [Unknown]
  - Asthenia [Unknown]
  - Disturbance in attention [Unknown]
  - Intentional product misuse [Unknown]
  - Carbon dioxide abnormal [Unknown]
  - Heart rate increased [Recovered/Resolved]
